FAERS Safety Report 12716601 (Version 3)
Quarter: 2016Q3

REPORT INFORMATION
  Report Type: Spontaneous
  Country: PL (occurrence: PL)
  Receive Date: 20160906
  Receipt Date: 20160929
  Transmission Date: 20161109
  Serious: Yes (Death, Hospitalization)
  Sender: FDA-Public Use
  Company Number: PL-ACTELION-A-CH2016-141747

PATIENT
  Age: 63 Year
  Sex: Male

DRUGS (14)
  1. INSULIN [Concomitant]
     Active Substance: INSULIN NOS
     Indication: PRODUCT USED FOR UNKNOWN INDICATION
  2. LOPERAMID [Concomitant]
     Active Substance: LOPERAMIDE
  3. VALIUM [Concomitant]
     Active Substance: DIAZEPAM
  4. REMODULIN [Concomitant]
     Active Substance: TREPROSTINIL
     Indication: PRODUCT USED FOR UNKNOWN INDICATION
     Dosage: UNK
     Route: 058
     Dates: start: 201407, end: 201607
  5. REVATIO [Concomitant]
     Active Substance: SILDENAFIL CITRATE
     Indication: PULMONARY ARTERIAL HYPERTENSION
     Dosage: 20 MG, TID
     Dates: start: 2008, end: 20160830
  6. FUROSEMIDUM [Concomitant]
     Active Substance: FUROSEMIDE
     Indication: PRODUCT USED FOR UNKNOWN INDICATION
     Route: 048
  7. HYDROCHLOROTHIAZIDE. [Concomitant]
     Active Substance: HYDROCHLOROTHIAZIDE
     Indication: PRODUCT USED FOR UNKNOWN INDICATION
     Dosage: 25 MG, UNK
     Route: 048
  8. VELETRI [Suspect]
     Active Substance: EPOPROSTENOL
     Indication: PULMONARY ARTERIAL HYPERTENSION
     Dosage: UNK
     Route: 042
     Dates: start: 20160712, end: 20160830
  9. LIPANTHYL [Concomitant]
     Active Substance: FENOFIBRATE
     Indication: PRODUCT USED FOR UNKNOWN INDICATION
     Dosage: 200 M, UNK
     Route: 048
  10. HUMALOG MIX75/25 [Concomitant]
     Active Substance: INSULIN LISPRO
  11. SORTIS [Concomitant]
     Active Substance: ATORVASTATIN
  12. MILURIT [Concomitant]
     Active Substance: ALLOPURINOL
  13. EPLERENONE. [Concomitant]
     Active Substance: EPLERENONE
     Indication: PRODUCT USED FOR UNKNOWN INDICATION
     Dosage: 25 MG, UNK
     Route: 048
  14. PARACETAMOL [Concomitant]
     Active Substance: ACETAMINOPHEN

REACTIONS (16)
  - Bacteraemia [Fatal]
  - Acute kidney injury [Fatal]
  - Respiratory failure [Fatal]
  - Rash [Fatal]
  - Sepsis [Fatal]
  - Right ventricular failure [Unknown]
  - White blood cell count increased [Fatal]
  - Urinary tract infection [Fatal]
  - Peritonitis bacterial [Fatal]
  - Pyrexia [Fatal]
  - C-reactive protein increased [Fatal]
  - Pulmonary arterial hypertension [Unknown]
  - Inadequate aseptic technique in use of product [Fatal]
  - Multiple organ dysfunction syndrome [Fatal]
  - Foreign body [Fatal]
  - Disease progression [Unknown]

NARRATIVE: CASE EVENT DATE: 20160718
